FAERS Safety Report 15948971 (Version 2)
Quarter: 2019Q1

REPORT INFORMATION
  Report Type: Report from Study
  Country: KR (occurrence: KR)
  Receive Date: 20190212
  Receipt Date: 20190222
  Transmission Date: 20190417
  Serious: Yes (Death, Hospitalization)
  Sender: FDA-Public Use
  Company Number: KR-ROCHE-2240672

PATIENT
  Age: 73 Year
  Sex: Male
  Weight: 70 kg

DRUGS (29)
  1. ATEZOLIZUMAB. [Suspect]
     Active Substance: ATEZOLIZUMAB
     Indication: TRANSITIONAL CELL CARCINOMA
     Dosage: DATE OF MOST RECENT DOSE OF ATEZOLIZUMAB (840 MG) PRIOR TO AE ONSET: 13/DEC/2018?ON DAYS 1 AND 15 OF
     Route: 042
     Dates: start: 20171228
  2. ZANIDIP [Concomitant]
     Active Substance: LERCANIDIPINE HYDROCHLORIDE
     Indication: HYPERTENSION
     Route: 065
     Dates: end: 20190103
  3. WINUF PERI [Concomitant]
     Route: 065
     Dates: start: 20190109, end: 20190110
  4. GASTER (SOUTH KOREA) [Concomitant]
     Route: 065
     Dates: start: 20190111
  5. POTASSIUM CHLORIDE. [Concomitant]
     Active Substance: POTASSIUM CHLORIDE
     Route: 065
     Dates: start: 20190111, end: 20190114
  6. LASIX [Concomitant]
     Active Substance: FUROSEMIDE
     Route: 065
     Dates: start: 20190111, end: 20190115
  7. NORPIN (NOREPINEPHRINE) [Concomitant]
     Route: 065
     Dates: start: 20190113
  8. OMAPONE PERI [Concomitant]
     Route: 065
     Dates: start: 20190115
  9. FENTANYL. [Concomitant]
     Active Substance: FENTANYL
     Route: 065
     Dates: start: 20190117, end: 20190119
  10. FREAMINE III NOS [Concomitant]
     Active Substance: AMINO ACIDS
     Route: 065
     Dates: start: 20190111, end: 20190115
  11. COBIMETINIB. [Suspect]
     Active Substance: COBIMETINIB
     Indication: TRANSITIONAL CELL CARCINOMA
     Dosage: DATE OF MOST RECENT DOSE OF COBIMETINIB (20 MG) PRIOR TO AE ONSET: 19/DEC/2018? FOR 21 DAYS AND 7 DA
     Route: 048
     Dates: start: 20171228
  12. SYNTHROID [Concomitant]
     Active Substance: LEVOTHYROXINE SODIUM
     Indication: HYPOTHYROIDISM
     Route: 065
     Dates: start: 20180903, end: 20190103
  13. PLASMA SOLUTION-A [Concomitant]
     Route: 065
     Dates: start: 20190118
  14. PULMICAN [Concomitant]
     Indication: PRODUCTIVE COUGH
     Route: 065
     Dates: end: 20190108
  15. RBC^S [Concomitant]
     Indication: ANAEMIA
     Dosage: FILTERED
     Route: 065
     Dates: start: 20190116
  16. FREAMINE III NOS [Concomitant]
     Active Substance: AMINO ACIDS
     Route: 065
     Dates: start: 20180123, end: 20181213
  17. ALBUMIN [Concomitant]
     Active Substance: ALBUMIN HUMAN
     Indication: HYPOALBUMINAEMIA
     Route: 065
     Dates: start: 20190113, end: 20190116
  18. HEPARIN [Concomitant]
     Active Substance: HEPARIN SODIUM
     Route: 065
     Dates: start: 20190114
  19. PENIRAMIN [Concomitant]
     Route: 065
     Dates: start: 20190116
  20. PERIDEX (SOUTH KOREA) [Concomitant]
     Route: 065
     Dates: start: 20190114
  21. MOTILITONE [Concomitant]
     Active Substance: HERBALS
     Route: 065
     Dates: start: 20190116
  22. BEECOM HEXA [Concomitant]
     Indication: BLOOD CREATININE INCREASED
     Route: 065
     Dates: start: 20180313, end: 20181213
  23. DENOGAN [Concomitant]
     Active Substance: PROPACETAMOL HYDROCHLORIDE
     Indication: PYREXIA
  24. VENTOLIN [Concomitant]
     Active Substance: ALBUTEROL SULFATE
     Indication: PRODUCTIVE COUGH
     Route: 065
     Dates: end: 20190108
  25. MEROPEN [Concomitant]
     Active Substance: MEROPENEM
     Route: 065
     Dates: start: 20190102, end: 20190110
  26. MUCOMYST [Concomitant]
     Active Substance: ACETYLCYSTEINE
     Indication: PRODUCTIVE COUGH
     Route: 065
     Dates: start: 20190110
  27. ATROVENT UDV [Concomitant]
     Active Substance: IPRATROPIUM BROMIDE
     Route: 065
     Dates: start: 20190112
  28. MIDAZOLAM [Concomitant]
     Active Substance: MIDAZOLAM HYDROCHLORIDE
     Route: 065
     Dates: start: 20190114
  29. RESOLOR [Concomitant]
     Active Substance: PRUCALOPRIDE SUCCINATE
     Indication: CONSTIPATION
     Route: 065
     Dates: start: 20190121

REACTIONS (2)
  - Dyspnoea [Not Recovered/Not Resolved]
  - Pneumonia [Fatal]

NARRATIVE: CASE EVENT DATE: 20181231
